FAERS Safety Report 16779750 (Version 1)
Quarter: 2019Q3

REPORT INFORMATION
  Report Type: Report from Study
  Country: IT (occurrence: IT)
  Receive Date: 20190906
  Receipt Date: 20190906
  Transmission Date: 20191005
  Serious: Yes (Other)
  Sender: FDA-Public Use
  Company Number: IT-ACCORD-154057

PATIENT
  Age: 54 Year

DRUGS (5)
  1. GEMCITABINE. [Concomitant]
     Active Substance: GEMCITABINE
  2. DEXAMETHASONE. [Concomitant]
     Active Substance: DEXAMETHASONE
  3. CARBOPLATIN. [Suspect]
     Active Substance: CARBOPLATIN
     Indication: OVARIAN CANCER
  4. RANITIDINE. [Concomitant]
     Active Substance: RANITIDINE
  5. NETUPITANT/PALONOSETRON [Concomitant]

REACTIONS (1)
  - Cardiac arrest [Unknown]
